FAERS Safety Report 20417925 (Version 2)
Quarter: 2022Q1

REPORT INFORMATION
  Report Type: Spontaneous
  Country: US (occurrence: US)
  Receive Date: 20220202
  Receipt Date: 20220207
  Transmission Date: 20220424
  Serious: No
  Sender: FDA-Public Use
  Company Number: US-GILEAD-2022-0567483

PATIENT
  Sex: Male

DRUGS (3)
  1. VEKLURY [Suspect]
     Active Substance: REMDESIVIR
     Indication: Product used for unknown indication
     Dosage: 100 MG IN 250 ML, ABOUT 90% OF THE DOSE IN 5 MINS, 3RD DOSE AT HOME
     Route: 042
  2. VEKLURY [Suspect]
     Active Substance: REMDESIVIR
     Dosage: 2ND DOSE AT HOME
     Route: 042
  3. VEKLURY [Suspect]
     Active Substance: REMDESIVIR
     Dosage: FIRST DOSE IN THE HOSPTIAL
     Route: 042

REACTIONS (2)
  - Blood pressure increased [Unknown]
  - Incorrect drug administration rate [Recovered/Resolved]
